FAERS Safety Report 22099145 (Version 1)
Quarter: 2023Q1

REPORT INFORMATION
  Report Type: Spontaneous
  Country: NL (occurrence: NL)
  Receive Date: 20230315
  Receipt Date: 20230315
  Transmission Date: 20230417
  Serious: Yes (Life-Threatening)
  Sender: FDA-Public Use
  Company Number: None

PATIENT
  Sex: Female
  Weight: 110 kg

DRUGS (1)
  1. BUPROPION [Suspect]
     Active Substance: BUPROPION
     Indication: Attention deficit hyperactivity disorder
     Dosage: 150 MG, QD (1 X PER DAG) (GENEESMIDDEL VOORGESCHREVEN DOOR ARTS: JA)
     Route: 065
     Dates: start: 20230222, end: 20230307

REACTIONS (2)
  - Suicidal behaviour [Recovering/Resolving]
  - Suicidal ideation [Recovering/Resolving]
